FAERS Safety Report 10943819 (Version 1)
Quarter: 2015Q1

REPORT INFORMATION
  Report Type: Spontaneous
  Country: US (occurrence: None)
  Receive Date: 20150212
  Receipt Date: 20150212
  Transmission Date: 20150721
  Serious: No
  Sender: FDA-Public Use
  Company Number: TPA2011A08029

PATIENT
  Sex: Female

DRUGS (4)
  1. IMURAN [Suspect]
     Active Substance: AZATHIOPRINE
     Indication: PROPHYLAXIS AGAINST TRANSPLANT REJECTION
     Dates: end: 2011
  2. ULORIC [Suspect]
     Active Substance: FEBUXOSTAT
     Indication: HYPERURICAEMIA
     Route: 048
     Dates: start: 201106, end: 20111128
  3. ULORIC [Suspect]
     Active Substance: FEBUXOSTAT
     Indication: LUNG TRANSPLANT
     Route: 048
     Dates: start: 201106, end: 20111128
  4. IMURAN [Suspect]
     Active Substance: AZATHIOPRINE
     Dates: end: 2011

REACTIONS (2)
  - Drug prescribing error [None]
  - White blood cell count decreased [None]

NARRATIVE: CASE EVENT DATE: 2011
